FAERS Safety Report 4439181-2 (Version None)
Quarter: 2004Q3

REPORT INFORMATION
  Report Type: 
  Country: None (occurrence: None)
  Receive Date: 20040831
  Receipt Date: 20040818
  Transmission Date: 20050211
  Serious: Yes (Hospitalization)
  Sender: FDA-Public Use
  Company Number: 04-00478

PATIENT
  Age: 44 Year
  Sex: Female
  Weight: 48.0813 kg

DRUGS (4)
  1. TRAZODONE HCL [Suspect]
     Indication: SLEEP DISORDER
     Dosage: 1000MG, 10 TABLETS  ONCE
     Dates: start: 20040701, end: 20040701
  2. CLONAZEPAM [Suspect]
     Dosage: 2MG, 3 TABLETS ONCE, ORAL
     Route: 048
     Dates: start: 20040719, end: 20040719
  3. ALCOHOL [Suspect]
     Dates: start: 20040718, end: 20040719
  4. PHENCYCLIDINE [Concomitant]

REACTIONS (6)
  - AGGRESSION [None]
  - CHILD ABUSE [None]
  - DRUG INTERACTION [None]
  - INTENTIONAL OVERDOSE [None]
  - PSYCHOTIC DISORDER [None]
  - SELF-MEDICATION [None]
